FAERS Safety Report 7085899-5 (Version None)
Quarter: 2010Q4

REPORT INFORMATION
  Report Type: 
  Country: None (occurrence: None)
  Receive Date: 20101007
  Receipt Date: 20100811
  Transmission Date: 20110411
  Serious: No
  Sender: FDA-Public Use
  Company Number: 2010IP000096

PATIENT
  Age: 66 Year
  Sex: Female

DRUGS (8)
  1. BEPREVE [Suspect]
     Indication: EYE PRURITUS
     Dosage: 1 GTT; BID; OPH
     Route: 047
     Dates: start: 20100810, end: 20100810
  2. METOPROLOL [Concomitant]
  3. LIPITOR [Concomitant]
  4. ZETIA [Concomitant]
  5. COMPAZINE [Concomitant]
  6. AMBIEN [Concomitant]
  7. AMANTADINE [Concomitant]
  8. DARVOCET-N 100 [Concomitant]

REACTIONS (1)
  - DYSGEUSIA [None]
